FAERS Safety Report 20496467 (Version 2)
Quarter: 2022Q1

REPORT INFORMATION
  Report Type: Report from Study
  Country: US (occurrence: US)
  Receive Date: 20220221
  Receipt Date: 20220321
  Transmission Date: 20220424
  Serious: No
  Sender: FDA-Public Use
  Company Number: US-BIOVITRUM-2022US02196

PATIENT
  Age: 37 Year
  Sex: Male

DRUGS (2)
  1. KINERET [Suspect]
     Active Substance: ANAKINRA
     Indication: Chronic infantile neurological cutaneous and articular syndrome
     Route: 058
     Dates: start: 20190404
  2. KINERET [Suspect]
     Active Substance: ANAKINRA
     Dosage: 250MG/100MG DAILY
     Route: 058
     Dates: start: 20190404

REACTIONS (1)
  - COVID-19 [Unknown]

NARRATIVE: CASE EVENT DATE: 20211228
